FAERS Safety Report 7106695-6 (Version None)
Quarter: 2010Q4

REPORT INFORMATION
  Report Type: 
  Country: None (occurrence: None)
  Receive Date: 20101116
  Receipt Date: 20101021
  Transmission Date: 20110411
  Serious: No
  Sender: FDA-Public Use
  Company Number: US-ABBOTT-10P-163-0680253-00

PATIENT
  Sex: Female
  Weight: 99.88 kg

DRUGS (5)
  1. SIMCOR [Suspect]
     Indication: BLOOD CHOLESTEROL INCREASED
     Dosage: 500/20
     Route: 048
     Dates: start: 20101016
  2. LEVOTHYROXINE SODIUM [Concomitant]
     Indication: HYPOTHYROIDISM
     Route: 048
  3. ATENOLOL [Concomitant]
     Indication: HYPERTENSION
     Route: 048
  4. TRIAMTERENE AND HYDROCHLOROTHIAZIDE [Concomitant]
     Indication: DIURETIC THERAPY
     Dosage: 75/50
     Route: 048
  5. VITAMIN D [Concomitant]
     Indication: VITAMIN D DECREASED
     Route: 048
     Dates: start: 20090101

REACTIONS (3)
  - EAR DISCOMFORT [None]
  - FLUSHING [None]
  - PRURITUS [None]
